FAERS Safety Report 5155644-9 (Version None)
Quarter: 2006Q4

REPORT INFORMATION
  Report Type: 
  Country: None (occurrence: None)
  Receive Date: 20061114
  Receipt Date: 20061102
  Transmission Date: 20070319
  Serious: Yes (Hospitalization)
  Sender: FDA-Public Use
  Company Number: 2006BI015964

PATIENT
  Sex: Male

DRUGS (1)
  1. AVONEX [Suspect]
     Indication: MULTIPLE SCLEROSIS
     Dosage: 20 UG; QW; IM
     Route: 030
     Dates: start: 20050201, end: 20061015

REACTIONS (4)
  - ASTHENIA [None]
  - CONSTIPATION [None]
  - DYSPNOEA [None]
  - MYOCARDIAL INFARCTION [None]
